FAERS Safety Report 9707205 (Version 1)
Quarter: 2013Q4

REPORT INFORMATION
  Report Type: Spontaneous
  Country: US (occurrence: US)
  Receive Date: 20131125
  Receipt Date: 20131125
  Transmission Date: 20140711
  Serious: Yes (Other)
  Sender: FDA-Public Use
  Company Number: US-JNJFOC-20131110844

PATIENT
  Age: 4 Year
  Sex: 0

DRUGS (4)
  1. TOPAMAX [Suspect]
     Indication: EPILEPSY
     Route: 048
  2. LAMICTAL [Suspect]
     Indication: EPILEPSY
     Route: 065
  3. VIMPAT [Suspect]
     Indication: EPILEPSY
     Route: 065
  4. KEPPRA [Suspect]
     Indication: EPILEPSY
     Route: 065

REACTIONS (3)
  - Abnormal behaviour [Unknown]
  - Growth retardation [Unknown]
  - Crying [Unknown]
